FAERS Safety Report 7337239-1 (Version None)
Quarter: 2011Q1

REPORT INFORMATION
  Report Type: 
  Country: None (occurrence: None)
  Receive Date: 20110308
  Receipt Date: 20110222
  Transmission Date: 20110831
  Serious: Yes (Hospitalization, Other)
  Sender: FDA-Public Use
  Company Number: FR-JNJFOC-20110207489

PATIENT
  Sex: Male
  Weight: 65 kg

DRUGS (3)
  1. DEXAMETHASONE [Suspect]
     Indication: MULTIPLE MYELOMA
     Route: 048
  2. CAELYX [Suspect]
     Indication: MULTIPLE MYELOMA
     Route: 042
  3. VELCADE [Suspect]
     Indication: MULTIPLE MYELOMA
     Dosage: DAY 1, DAY 8, DAY 15, DAY 22
     Route: 042

REACTIONS (9)
  - ASTHENIA [None]
  - BACK PAIN [None]
  - SOMNOLENCE [None]
  - VISUAL ACUITY REDUCED [None]
  - GENERAL PHYSICAL HEALTH DETERIORATION [None]
  - CONSTIPATION [None]
  - BLOOD CREATININE INCREASED [None]
  - LUNG DISORDER [None]
  - PARAESTHESIA [None]
